FAERS Safety Report 8223833-2 (Version None)
Quarter: 2012Q1

REPORT INFORMATION
  Report Type: 
  Country: None (occurrence: None)
  Receive Date: 20120321
  Receipt Date: 20120309
  Transmission Date: 20120608
  Serious: Yes (Hospitalization, Other)
  Sender: FDA-Public Use
  Company Number: JP-JNJFOC-20111108749

PATIENT
  Sex: Male
  Weight: 68 kg

DRUGS (14)
  1. RHEUMATREX [Concomitant]
     Route: 048
  2. RHEUMATREX [Suspect]
     Indication: RHEUMATOID ARTHRITIS
     Route: 048
     Dates: start: 20110707, end: 20111031
  3. RHEUMATREX [Suspect]
     Route: 048
     Dates: end: 20110706
  4. PREDNISOLONE [Suspect]
     Indication: PRODUCT USED FOR UNKNOWN INDICATION
     Route: 048
  5. DIOVAN [Suspect]
     Indication: HYPERTENSION
     Route: 048
  6. REMICADE [Suspect]
     Route: 042
     Dates: start: 20100121
  7. RHEUMATREX [Suspect]
     Route: 048
     Dates: start: 20100101
  8. ISONIAZID [Concomitant]
     Indication: ANTIBIOTIC PROPHYLAXIS
     Route: 048
     Dates: start: 20100101, end: 20101001
  9. REMICADE [Suspect]
     Indication: RHEUMATOID ARTHRITIS
     Dosage: 13TH INFUSION
     Route: 042
     Dates: start: 20111005
  10. REMICADE [Suspect]
     Route: 042
  11. FOLIC ACID [Suspect]
     Indication: PROPHYLAXIS
     Route: 048
  12. REMICADE [Suspect]
     Route: 042
     Dates: start: 20110707
  13. ALFAROL [Suspect]
     Indication: OSTEOPOROSIS
     Route: 048
  14. CRESTOR [Suspect]
     Indication: HYPERCHOLESTEROLAEMIA
     Route: 048

REACTIONS (1)
  - TUBERCULOUS PLEURISY [None]
